FAERS Safety Report 20577608 (Version 2)
Quarter: 2022Q2

REPORT INFORMATION
  Report Type: Report from Study
  Country: US (occurrence: US)
  Receive Date: 20220310
  Receipt Date: 20220404
  Transmission Date: 20220721
  Serious: Yes (Hospitalization, Other)
  Sender: FDA-Public Use
  Company Number: US-GILEAD-2022-0570441

PATIENT
  Age: 66 Year
  Sex: Female

DRUGS (1)
  1. AMBRISENTAN [Suspect]
     Active Substance: AMBRISENTAN
     Indication: Product used for unknown indication
     Dosage: 10 MG
     Route: 065
     Dates: start: 20120410

REACTIONS (8)
  - Cardiac failure congestive [Unknown]
  - Paranasal sinus hypersecretion [Unknown]
  - Dizziness [Unknown]
  - Lower respiratory tract congestion [Unknown]
  - Throat irritation [Unknown]
  - Vomiting [Unknown]
  - Blood pressure increased [Unknown]
  - Chest pain [Unknown]
